FAERS Safety Report 7442441-4 (Version None)
Quarter: 2011Q2

REPORT INFORMATION
  Report Type: 
  Country: None (occurrence: None)
  Receive Date: 20110428
  Receipt Date: 20110110
  Transmission Date: 20111010
  Serious: No
  Sender: FDA-Public Use
  Company Number: US-ASTRAZENECA-2010SE20409

PATIENT
  Age: 71 Year
  Sex: Female

DRUGS (1)
  1. ZOMIG [Suspect]
     Route: 048

REACTIONS (5)
  - SURGERY [None]
  - FIBROMYALGIA [None]
  - MIGRAINE [None]
  - HEADACHE [None]
  - MALAISE [None]
